FAERS Safety Report 20718838 (Version 1)
Quarter: 2022Q2

REPORT INFORMATION
  Report Type: Spontaneous
  Country: US (occurrence: US)
  Receive Date: 20220418
  Receipt Date: 20220418
  Transmission Date: 20220721
  Serious: Yes (Other)
  Sender: FDA-Public Use
  Company Number: US-ELI_LILLY_AND_COMPANY-US202112005309

PATIENT
  Age: 62 Year
  Sex: Female
  Weight: 66.7 kg

DRUGS (4)
  1. RETEVMO [Suspect]
     Active Substance: SELPERCATINIB
     Indication: Non-small cell lung cancer
     Dosage: 160 MG, BID
     Route: 048
     Dates: start: 20210917, end: 20211214
  2. RETEVMO [Suspect]
     Active Substance: SELPERCATINIB
     Dosage: 80 MG, BID
     Route: 048
     Dates: start: 20211222
  3. RETEVMO [Suspect]
     Active Substance: SELPERCATINIB
     Dosage: 240 MG, 160MG AT AM, 80MG AT PM
     Route: 048
     Dates: start: 20220112
  4. RETEVMO [Suspect]
     Active Substance: SELPERCATINIB
     Dosage: 160 MG, BID
     Route: 048
     Dates: start: 20220217, end: 20220310

REACTIONS (4)
  - Hepatic steatosis [Unknown]
  - Malignant neoplasm progression [Unknown]
  - Hyperbilirubinaemia [Unknown]
  - Hypertransaminasaemia [Unknown]

NARRATIVE: CASE EVENT DATE: 20211103
